FAERS Safety Report 10431253 (Version 2)
Quarter: 2014Q3

REPORT INFORMATION
  Report Type: Spontaneous
  Country: HR (occurrence: HR)
  Receive Date: 20140904
  Receipt Date: 20140915
  Transmission Date: 20150326
  Serious: Yes (Hospitalization)
  Sender: FDA-Public Use
  Company Number: PHHY2014HR109736

PATIENT
  Age: 26 Year
  Sex: Male

DRUGS (2)
  1. VALPROIC ACID. [Suspect]
     Active Substance: VALPROIC ACID
     Indication: BIPOLAR DISORDER
     Dosage: 1000 MG, PER DAY
     Dates: start: 2010
  2. SERTRALINE [Concomitant]
     Active Substance: SERTRALINE HYDROCHLORIDE
     Indication: BIPOLAR DISORDER
     Dosage: 50 MG, PER DAY
     Dates: start: 2010

REACTIONS (10)
  - Mononeuropathy [Recovered/Resolved]
  - Toxicity to various agents [Unknown]
  - Sensory loss [Recovered/Resolved]
  - Paresis [Recovered/Resolved]
  - Mental status changes [Recovered/Resolved]
  - Intentional overdose [Unknown]
  - Muscular weakness [Recovered/Resolved]
  - Drug level increased [Unknown]
  - Suicide attempt [Unknown]
  - Sopor [Recovered/Resolved]

NARRATIVE: CASE EVENT DATE: 201208
